FAERS Safety Report 18859243 (Version 1)
Quarter: 2021Q1

REPORT INFORMATION
  Report Type: Spontaneous
  Country: US (occurrence: US)
  Receive Date: 20210206
  Receipt Date: 20210206
  Transmission Date: 20210420
  Serious: Yes (Hospitalization)
  Sender: FDA-Public Use
  Company Number: None

PATIENT
  Age: 73 Year
  Sex: Male
  Weight: 91.6 kg

DRUGS (3)
  1. 5?FLUOROURACIL (5?FU) [Suspect]
     Active Substance: FLUOROURACIL
     Dates: end: 20201210
  2. LEUCOVORIN CALCIUM. [Suspect]
     Active Substance: LEUCOVORIN CALCIUM
     Dates: end: 20201210
  3. ELOXATIN [Suspect]
     Active Substance: OXALIPLATIN
     Dates: end: 20201210

REACTIONS (8)
  - Escherichia bacteraemia [None]
  - Ascites [None]
  - Asthenia [None]
  - Pallor [None]
  - Hyperhidrosis [None]
  - Metastatic neoplasm [None]
  - Unresponsive to stimuli [None]
  - Atrial fibrillation [None]

NARRATIVE: CASE EVENT DATE: 20201215
